FAERS Safety Report 5268751-7 (Version None)
Quarter: 2007Q1

REPORT INFORMATION
  Report Type: 
  Country: None (occurrence: None)
  Receive Date: 20070319
  Receipt Date: 20070308
  Transmission Date: 20070707
  Serious: No
  Sender: FDA-Public Use
  Company Number: FR-BAXTER-2007BH000858

PATIENT
  Age: 14 Year
  Sex: Male

DRUGS (3)
  1. CEFTRIAXONE [Suspect]
     Indication: SINUSITIS
     Route: 042
  2. CEFTRIAXONE [Suspect]
     Indication: EXTRADURAL ABSCESS
     Route: 042
  3. METRONIDAZOLE [Concomitant]
     Indication: SINUSITIS
     Dosage: DOSE UNIT:UNKNOWN
     Route: 065

REACTIONS (5)
  - ANURIA [None]
  - CHOLELITHIASIS [None]
  - HAEMATURIA [None]
  - NEPHROLITHIASIS [None]
  - RENAL FAILURE ACUTE [None]
